FAERS Safety Report 10077004 (Version 1)
Quarter: 2014Q2

REPORT INFORMATION
  Report Type: Spontaneous
  Country: GB (occurrence: GB)
  Receive Date: 20140414
  Receipt Date: 20140414
  Transmission Date: 20141212
  Serious: Yes (Disabling, Other)
  Sender: FDA-Public Use
  Company Number: GB-PFIZER INC-2014100546

PATIENT
  Age: 53 Year
  Sex: Female
  Weight: 82.09 kg

DRUGS (4)
  1. SULFASALAZINE [Suspect]
     Indication: RHEUMATOID ARTHRITIS
     Dosage: 500 MG UNIT DOSE, UNK
     Route: 048
     Dates: start: 20140212, end: 20140310
  2. FOLIC ACID [Concomitant]
  3. LOSEC [Concomitant]
  4. METHOTREXATE [Concomitant]

REACTIONS (8)
  - Gastritis [Recovered/Resolved]
  - Dizziness [Recovered/Resolved]
  - Headache [Recovered/Resolved]
  - Blood pressure increased [Recovered/Resolved]
  - Disturbance in attention [Recovered/Resolved]
  - Decreased appetite [Recovered/Resolved]
  - Haematochezia [Recovered/Resolved]
  - Vertigo [Recovered/Resolved]
